FAERS Safety Report 5609102-5 (Version None)
Quarter: 2008Q1

REPORT INFORMATION
  Report Type: 
  Country: None (occurrence: None)
  Receive Date: 20080131
  Receipt Date: 20080129
  Transmission Date: 20080703
  Serious: Yes (Hospitalization)
  Sender: FDA-Public Use
  Company Number: US-BRISTOL-MYERS SQUIBB COMPANY-14056063

PATIENT
  Age: 50 Year
  Sex: Female
  Weight: 82 kg

DRUGS (5)
  1. GLUCOPHAGE [Suspect]
     Indication: DIABETES MELLITUS
     Dosage: 1 DOSAGE FORM = 1000 MG, 2 TABLETS.
  2. BENICAR [Concomitant]
  3. CLONIDINE [Concomitant]
  4. TOPROL-XL [Concomitant]
  5. WELLBUTRIN [Concomitant]

REACTIONS (6)
  - BLOOD PRESSURE INADEQUATELY CONTROLLED [None]
  - BREATH ALCOHOL TEST POSITIVE [None]
  - DRUG ADMINISTRATION ERROR [None]
  - LOCALISED INFECTION [None]
  - OVERDOSE [None]
  - URINE ALCOHOL TEST NEGATIVE [None]
